FAERS Safety Report 5897673-3 (Version None)
Quarter: 2008Q3

REPORT INFORMATION
  Report Type: 
  Country: None (occurrence: None)
  Receive Date: 20080925
  Receipt Date: 20080916
  Transmission Date: 20090109
  Serious: Yes (Hospitalization)
  Sender: FDA-Public Use
  Company Number: US-AMGEN-QUU308200

PATIENT
  Sex: Female

DRUGS (2)
  1. ENBREL [Suspect]
     Indication: RHEUMATOID ARTHRITIS
     Route: 058
     Dates: start: 20000824
  2. METHOTREXATE [Concomitant]
     Route: 048

REACTIONS (10)
  - ALOPECIA [None]
  - FOOT OPERATION [None]
  - INJECTION SITE ERYTHEMA [None]
  - INJECTION SITE PRURITUS [None]
  - INJECTION SITE WARMTH [None]
  - PRURITUS [None]
  - RHEUMATOID ARTHRITIS [None]
  - SINUSITIS [None]
  - TOOTH REPAIR [None]
  - URTICARIA [None]
